FAERS Safety Report 20670538 (Version 12)
Quarter: 2022Q3

REPORT INFORMATION
  Report Type: Report from Study
  Country: FR (occurrence: None)
  Receive Date: 20220404
  Receipt Date: 20220927
  Transmission Date: 20221026
  Serious: Yes (Hospitalization, Other)
  Sender: FDA-Public Use
  Company Number: FR-ROCHE-3067589

PATIENT
  Age: 67 Year
  Sex: Female
  Weight: 63 kg

DRUGS (36)
  1. TIRAGOLUMAB [Suspect]
     Active Substance: TIRAGOLUMAB
     Indication: Squamous cell carcinoma
     Dosage: MOST RECENT DOSE OF STUDY DRUG PRIOR TO AE/SAE : 15/MAR/2022
     Route: 042
     Dates: start: 20210928
  2. ATEZOLIZUMAB [Suspect]
     Active Substance: ATEZOLIZUMAB
     Indication: Squamous cell carcinoma
     Dosage: MOST RECENT DOSE OF STUDY DRUG PRIOR TO AE/SAE : 15/MAR/2022, 1200 MG
     Route: 041
     Dates: start: 20210928
  3. NICARDIPINE HYDROCHLORIDE [Concomitant]
     Active Substance: NICARDIPINE HYDROCHLORIDE
     Indication: Hypertension
     Dosage: YES
     Dates: start: 2020
  4. VILDAGLIPTIN [Concomitant]
     Active Substance: VILDAGLIPTIN
     Indication: Type 2 diabetes mellitus
     Dosage: YES
     Dates: start: 2020
  5. ESCITALOPRAM OXALATE [Concomitant]
     Active Substance: ESCITALOPRAM OXALATE
     Indication: Depression
     Dosage: YES
     Dates: start: 2012
  6. LEVOTHYROXINE [Concomitant]
     Active Substance: LEVOTHYROXINE
     Indication: Hypothyroidism
     Dosage: YES
     Dates: start: 2016
  7. MICROLAX [Concomitant]
     Indication: Constipation
     Dosage: YES
     Dates: start: 2011
  8. MOVICOL [Concomitant]
     Active Substance: POLYETHYLENE GLYCOL 3350\POTASSIUM CHLORIDE\SODIUM BICARBONATE\SODIUM CHLORIDE
     Indication: Constipation
     Dosage: NO
     Dates: start: 2011, end: 20220407
  9. SODIUM BICARBONATE [Concomitant]
     Active Substance: SODIUM BICARBONATE
     Dosage: GIVEN FOR PROPHYLAXIS IS YES ;ONGOING: YES
     Dates: start: 2011
  10. MORPHINE SULFATE [Concomitant]
     Active Substance: MORPHINE SULFATE
     Indication: Dysphagia
     Dosage: YES
     Dates: start: 20210916
  11. LIDOCAINE [Concomitant]
     Active Substance: LIDOCAINE
     Indication: Post herpetic neuralgia
     Dosage: YES
     Dates: start: 2021
  12. PRIMPERAN [Concomitant]
     Active Substance: METOCLOPRAMIDE HYDROCHLORIDE
     Indication: Prophylaxis
     Dosage: GIVEN FOR PROPHYLAXIS IS YES ;ONGOING: YES
     Dates: start: 20211018
  13. BROMAZEPAM [Concomitant]
     Active Substance: BROMAZEPAM
     Indication: Insomnia
     Dates: start: 20220401
  14. CICALFATE [Concomitant]
     Indication: Dry skin
     Dosage: YES
     Dates: start: 20211217
  15. ROXITHROMYCIN [Concomitant]
     Active Substance: ROXITHROMYCIN
     Indication: Tracheitis
     Dosage: YES
     Route: 048
     Dates: start: 20220107
  16. POLYETHYLENE GLYCOLS [Concomitant]
     Active Substance: POLYETHYLENE GLYCOLS
     Indication: Constipation
     Route: 048
     Dates: start: 20220107
  17. VOGALENE [Concomitant]
     Active Substance: METOPIMAZINE
     Indication: Nausea
     Route: 048
     Dates: start: 20220111
  18. VOGALENE [Concomitant]
     Active Substance: METOPIMAZINE
     Route: 048
     Dates: start: 20220201
  19. ONDANSETRON [Concomitant]
     Active Substance: ONDANSETRON
     Indication: Nausea
     Dates: start: 20220201
  20. ATARAX [Concomitant]
     Active Substance: HYDROXYZINE HYDROCHLORIDE
     Indication: Rash
     Dates: start: 20220304, end: 20220401
  21. BILASTINE [Concomitant]
     Active Substance: BILASTINE
     Indication: Pruritus
     Dates: start: 20220316, end: 20220401
  22. PERFALGAN [Concomitant]
     Active Substance: ACETAMINOPHEN
     Indication: Pain
     Dates: start: 20220401, end: 20220402
  23. TERBUTALINE [Concomitant]
     Active Substance: TERBUTALINE
     Route: 055
     Dates: start: 20220401, end: 20220402
  24. FUNGIZONE [Concomitant]
     Active Substance: AMPHOTERICIN B
     Indication: Dysgeusia
     Dates: start: 20220315, end: 20220329
  25. NALOXEGOL OXALATE [Concomitant]
     Active Substance: NALOXEGOL OXALATE
     Indication: Constipation
     Dates: start: 20220407
  26. TRANSILANE [Concomitant]
     Indication: Constipation
     Dates: start: 20220407
  27. NORMACOL [Concomitant]
     Active Substance: HERBALS\KARAYA GUM
     Indication: Constipation
     Dates: start: 20220411, end: 20220411
  28. PREDNISOLONE [Concomitant]
     Active Substance: PREDNISOLONE
     Indication: Adrenal insufficiency
     Route: 048
     Dates: start: 20220411, end: 20220415
  29. PREDNISOLONE [Concomitant]
     Active Substance: PREDNISOLONE
     Indication: Asthenia
     Route: 048
     Dates: start: 20220416, end: 20220422
  30. PREDNISOLONE [Concomitant]
     Active Substance: PREDNISOLONE
     Route: 048
     Dates: start: 20220423, end: 20220426
  31. PREDNISOLONE [Concomitant]
     Active Substance: PREDNISOLONE
     Route: 048
     Dates: start: 20220427, end: 20220502
  32. VITAMINS [Concomitant]
     Active Substance: VITAMINS
     Indication: Asthenia
     Dates: start: 20220316
  33. CARBOPLATIN [Concomitant]
     Active Substance: CARBOPLATIN
     Indication: Neoplasm malignant
     Dosage: 5 OTHER
     Dates: start: 20220519, end: 20220708
  34. CETUXIMAB [Concomitant]
     Active Substance: CETUXIMAB
     Indication: Neoplasm malignant
     Dosage: 250 OTHER
     Dates: start: 20220519, end: 20220708
  35. CETUXIMAB [Concomitant]
     Active Substance: CETUXIMAB
     Dates: start: 20220722
  36. PACLITAXEL [Concomitant]
     Active Substance: PACLITAXEL
     Indication: Neoplasm malignant
     Dosage: 80 OTHER
     Dates: start: 20220722

REACTIONS (3)
  - Alanine aminotransferase increased [Recovered/Resolved]
  - Hyperkalaemia [Recovered/Resolved]
  - Immune-mediated adrenal insufficiency [Not Recovered/Not Resolved]

NARRATIVE: CASE EVENT DATE: 20220401
